FAERS Safety Report 4871219-0 (Version None)
Quarter: 2005Q4

REPORT INFORMATION
  Report Type: 
  Country: None (occurrence: None)
  Receive Date: 20051229
  Receipt Date: 20051220
  Transmission Date: 20060501
  Serious: Yes (Other)
  Sender: FDA-Public Use
  Company Number: TCI2005A04600

PATIENT
  Age: 61 Year
  Sex: Male

DRUGS (6)
  1. ACTOS [Suspect]
     Indication: DIABETES MELLITUS
     Dosage: 30 MG (30 MG, 1 IN 1 D) PER ORAL
     Route: 048
     Dates: start: 20051006, end: 20051018
  2. AMARYL [Suspect]
     Indication: DIABETES MELLITUS
     Dosage: 3 MG (1 MG, 3 IN 1 D) PER ORAL
     Route: 048
     Dates: start: 20051006, end: 20051018
  3. PHENOBAL (PHENOBARBITAL) [Suspect]
     Indication: COUGH
     Dosage: 1 GM (1 GM, 1 D) PER ORAL
     Route: 048
     Dates: start: 20051018, end: 20051022
  4. CODEINE PHOSPHATE [Concomitant]
  5. HUSTAGIN (PLANTAGO MAJOR) [Concomitant]
  6. LACTOSE [Concomitant]

REACTIONS (6)
  - DERMATITIS ALLERGIC [None]
  - DERMATITIS EXFOLIATIVE [None]
  - DRUG ERUPTION [None]
  - DRUG INTERACTION [None]
  - PRURITUS [None]
  - TOXIC EPIDERMAL NECROLYSIS [None]
